FAERS Safety Report 9438499 (Version 3)
Quarter: 2013Q3

REPORT INFORMATION
  Report Type: Spontaneous
  Country: US (occurrence: US)
  Receive Date: 20130802
  Receipt Date: 20130819
  Transmission Date: 20140515
  Serious: Yes (Hospitalization, Other)
  Sender: FDA-Public Use
  Company Number: US-GILEAD-2013-0080533

PATIENT
  Sex: Female

DRUGS (2)
  1. LETAIRIS [Suspect]
     Indication: PULMONARY ARTERIAL HYPERTENSION
     Dosage: 5 MG, QD
     Route: 048
     Dates: start: 20130710
  2. ADCIRCA [Concomitant]

REACTIONS (4)
  - Bacterial infection [Unknown]
  - Pulmonary oedema [Unknown]
  - Cardiac disorder [Unknown]
  - Diarrhoea [Unknown]
